FAERS Safety Report 17548907 (Version 7)
Quarter: 2022Q4

REPORT INFORMATION
  Report Type: Spontaneous
  Country: US (occurrence: US)
  Receive Date: 20200317
  Receipt Date: 20221205
  Transmission Date: 20230113
  Serious: No
  Sender: FDA-Public Use
  Company Number: US-BIOGEN-2019BI00700516

PATIENT
  Age: 31 Year
  Sex: Male

DRUGS (2)
  1. TYSABRI [Suspect]
     Active Substance: NATALIZUMAB
     Indication: Multiple sclerosis
     Route: 050
     Dates: start: 20150708
  2. TYSABRI [Suspect]
     Active Substance: NATALIZUMAB
     Route: 050
     Dates: start: 201901

REACTIONS (2)
  - Prescribed underdose [Not Recovered/Not Resolved]
  - Anxiety [Unknown]

NARRATIVE: CASE EVENT DATE: 20190101
